FAERS Safety Report 24384687 (Version 2)
Quarter: 2025Q3

REPORT INFORMATION
  Report Type: Report from Study
  Country: US (occurrence: US)
  Receive Date: 20241001
  Receipt Date: 20250809
  Transmission Date: 20251021
  Serious: Yes (Hospitalization, Other)
  Sender: ALEXION PHARMACEUTICALS
  Company Number: US-AstraZeneca-CH-00710789A

PATIENT
  Sex: Female

DRUGS (3)
  1. ULTOMIRIS [Suspect]
     Active Substance: RAVULIZUMAB-CWVZ
     Indication: Myasthenia gravis
     Route: 065
  2. PREDNISONE [Suspect]
     Active Substance: PREDNISONE
     Route: 065
  3. HIZENTRA [Suspect]
     Active Substance: HUMAN IMMUNOGLOBULIN G
     Route: 065

REACTIONS (7)
  - Systemic lupus erythematosus [Unknown]
  - Liver disorder [Unknown]
  - Cutaneous lupus erythematosus [Unknown]
  - Weight decreased [Unknown]
  - Illness [Unknown]
  - Alopecia [Unknown]
  - Generalised oedema [Unknown]

NARRATIVE: CASE EVENT DATE: 20230101
